FAERS Safety Report 8193870-5 (Version None)
Quarter: 2012Q1

REPORT INFORMATION
  Report Type: 
  Country: None (occurrence: None)
  Receive Date: 20120308
  Receipt Date: 20120229
  Transmission Date: 20120608
  Serious: Yes (Other)
  Sender: FDA-Public Use
  Company Number: IT-JNJFOC-20120214291

PATIENT
  Age: 41 Year
  Sex: Female

DRUGS (3)
  1. BETAMETHASONE SODIUM PHOSPHATE [Concomitant]
  2. ACETAMINOPHEN [Concomitant]
  3. SIMPONI [Suspect]
     Indication: SERONEGATIVE ARTHRITIS
     Route: 058
     Dates: start: 20111220

REACTIONS (2)
  - LYMPHOMA [None]
  - WHITE BLOOD CELL COUNT DECREASED [None]
